FAERS Safety Report 24801045 (Version 1)
Quarter: 2025Q1

REPORT INFORMATION
  Report Type: Report from Study
  Country: US (occurrence: US)
  Receive Date: 20250102
  Receipt Date: 20250102
  Transmission Date: 20250408
  Serious: Yes (Hospitalization, Other)
  Sender: TAKEDA
  Company Number: US-TAKEDA-US201943090

PATIENT
  Sex: Male

DRUGS (5)
  1. ICATIBANT [Suspect]
     Active Substance: ICATIBANT ACETATE
     Indication: Immune system disorder
  2. ICATIBANT [Suspect]
     Active Substance: ICATIBANT ACETATE
  3. ICATIBANT [Suspect]
     Active Substance: ICATIBANT ACETATE
     Dosage: 1000 INTERNATIONAL UNIT, 1/WEEK
     Dates: start: 20191202
  4. ICATIBANT [Suspect]
     Active Substance: ICATIBANT ACETATE
  5. ICATIBANT [Suspect]
     Active Substance: ICATIBANT ACETATE

REACTIONS (7)
  - Head and neck cancer [Unknown]
  - Cerebrovascular accident [Unknown]
  - Pain [Unknown]
  - Seasonal allergy [Unknown]
  - Weight increased [Unknown]
  - Weight decreased [Unknown]
  - Erythema [Unknown]
